FAERS Safety Report 5933403-4 (Version None)
Quarter: 2008Q4

REPORT INFORMATION
  Report Type: 
  Country: None (occurrence: None)
  Receive Date: 20081023
  Receipt Date: 20081007
  Transmission Date: 20090506
  Serious: Yes (Life-Threatening, Hospitalization, Disabling, Other)
  Sender: FDA-Public Use
  Company Number: CTI_00950_2008

PATIENT
  Sex: Male
  Weight: 66.2252 kg

DRUGS (2)
  1. ZYFLO CR [Suspect]
     Indication: ASTHMA
     Dosage: (600 MG QID ORAL), (600 MG QID ORAL)
     Route: 048
     Dates: start: 20060915, end: 20070623
  2. ZYFLO CR [Suspect]
     Indication: ASTHMA
     Dosage: (600 MG QID ORAL), (600 MG QID ORAL)
     Route: 048
     Dates: start: 20070720, end: 20071106

REACTIONS (3)
  - HEPATIC ENZYME INCREASED [None]
  - JAUNDICE CHOLESTATIC [None]
  - LIVER INJURY [None]
